FAERS Safety Report 9372790 (Version 1)
Quarter: 2013Q2

REPORT INFORMATION
  Report Type: Spontaneous
  Country: US (occurrence: US)
  Receive Date: 20130627
  Receipt Date: 20130627
  Transmission Date: 20140414
  Serious: No
  Sender: FDA-Public Use
  Company Number: US-PFIZER INC-2013190668

PATIENT
  Age: 15 Year
  Sex: Female
  Weight: 57 kg

DRUGS (4)
  1. PRISTIQ [Suspect]
     Indication: DEPRESSION
     Dosage: 50 MG, 1X/DAY
     Route: 048
     Dates: start: 201304, end: 2013
  2. PRISTIQ [Suspect]
     Dosage: 100 MG, 1X/DAY
     Route: 048
     Dates: start: 2013, end: 2013
  3. PRISTIQ [Suspect]
     Dosage: 50 MG, 1X/DAY
     Route: 048
     Dates: start: 2013, end: 2013
  4. PRISTIQ [Suspect]
     Dosage: 25 MG (CUTTING 50MG IN HALF), UNK
     Route: 048
     Dates: start: 2013, end: 20130624

REACTIONS (4)
  - Drug withdrawal syndrome [Not Recovered/Not Resolved]
  - Off label use [Unknown]
  - Drug dose omission [Unknown]
  - Drug administration error [Unknown]
